FAERS Safety Report 7734250-3 (Version None)
Quarter: 2011Q3

REPORT INFORMATION
  Report Type: 
  Country: None (occurrence: None)
  Receive Date: 20110907
  Receipt Date: 20110831
  Transmission Date: 20111222
  Serious: Yes (Hospitalization)
  Sender: FDA-Public Use
  Company Number: IN-SANOFI-AVENTIS-2011SA056559

PATIENT
  Age: 56 Year
  Sex: Male

DRUGS (4)
  1. INVESTIGATIONAL DRUG [Suspect]
     Route: 048
     Dates: start: 20110615, end: 20110616
  2. INVESTIGATIONAL DRUG [Suspect]
     Route: 048
     Dates: start: 20110612, end: 20110614
  3. INVESTIGATIONAL DRUG [Suspect]
     Route: 048
     Dates: start: 20110618
  4. ENOXAPARIN SODIUM [Suspect]
     Route: 058
     Dates: start: 20110612, end: 20110616

REACTIONS (3)
  - DEEP VEIN THROMBOSIS [None]
  - INTERNATIONAL NORMALISED RATIO INCREASED [None]
  - JAUNDICE CHOLESTATIC [None]
